FAERS Safety Report 23079096 (Version 1)
Quarter: 2023Q4

REPORT INFORMATION
  Report Type: Report from Study
  Country: CA (occurrence: None)
  Receive Date: 20231018
  Receipt Date: 20231018
  Transmission Date: 20240110
  Serious: Yes (Other)
  Sender: FDA-Public Use
  Company Number: 2023A233998

PATIENT
  Sex: Male

DRUGS (4)
  1. FASENRA [Suspect]
     Active Substance: BENRALIZUMAB
     Indication: Severe asthma with fungal sensitisation
     Dosage: 30.0MG UNKNOWN
     Route: 058
     Dates: start: 20200109, end: 20210627
  2. SPIRIVA RESPIMAT [Concomitant]
     Active Substance: TIOTROPIUM BROMIDE
     Dosage: 2 PUFFS DIE2.5UG UNKNOWN
  3. SINGULAIR [Concomitant]
     Active Substance: MONTELUKAST SODIUM
  4. VENTOLIN [Concomitant]
     Active Substance: ALBUTEROL SULFATE

REACTIONS (2)
  - Asthma [Unknown]
  - Drug ineffective [Unknown]
